FAERS Safety Report 9671748 (Version 3)
Quarter: 2014Q1

REPORT INFORMATION
  Report Type: Spontaneous
  Country: BR (occurrence: BR)
  Receive Date: 20131106
  Receipt Date: 20140310
  Transmission Date: 20141002
  Serious: Yes (Hospitalization)
  Sender: FDA-Public Use
  Company Number: BR-PFIZER INC-2013254194

PATIENT
  Age: 53 Year
  Sex: Female

DRUGS (10)
  1. SUTENT [Suspect]
     Indication: RENAL CELL CARCINOMA
     Dosage: 50 MG (ONE CAPSULE) ONCE DAILY, CYCLIC
     Route: 048
     Dates: start: 20130826
  2. BENICAR HCT [Concomitant]
     Dosage: STRENGTH 40/20MG
  3. ATENOLOL [Concomitant]
     Dosage: STRENGTH 25MG
  4. ADALAT OROS [Concomitant]
     Dosage: STRENGTH 30MG
  5. CITALOPRAM [Concomitant]
     Dosage: STRENGTH 5MG
  6. VALIUM [Concomitant]
     Dosage: 2.5 MG, 1X/DAY
  7. VALIUM [Concomitant]
     Dosage: 5 MG, 1X/DAY
  8. VYTORIN [Concomitant]
     Dosage: STRENGTH 10/20 UG
  9. LEXATO [Concomitant]
     Dosage: STRENGTH 5MG
  10. AMLODIPINE [Concomitant]
     Dosage: STRENGTH 10MG

REACTIONS (38)
  - Platelet count decreased [Not Recovered/Not Resolved]
  - White blood cell count decreased [Not Recovered/Not Resolved]
  - Blood pressure increased [Unknown]
  - Decreased appetite [Unknown]
  - Diarrhoea [Unknown]
  - Yellow skin [Unknown]
  - Haematoma [Unknown]
  - Conjunctivitis [Unknown]
  - Headache [Unknown]
  - Pain in extremity [Unknown]
  - Weight decreased [Unknown]
  - Mucosal inflammation [Unknown]
  - Asthenia [Unknown]
  - Nausea [Unknown]
  - Leukopenia [Unknown]
  - Yellow skin [Unknown]
  - Alopecia [Unknown]
  - Hepatomegaly [Unknown]
  - Mucosal inflammation [Unknown]
  - Diarrhoea [Unknown]
  - Rash macular [Unknown]
  - Nausea [Unknown]
  - Fatigue [Unknown]
  - Glossodynia [Unknown]
  - Dry mouth [Not Recovered/Not Resolved]
  - Dyspepsia [Unknown]
  - Arthralgia [Unknown]
  - Pallor [Not Recovered/Not Resolved]
  - Sluggishness [Unknown]
  - Somnolence [Unknown]
  - Pain [Unknown]
  - Aphthous stomatitis [Unknown]
  - Tongue ulceration [Unknown]
  - Dry skin [Unknown]
  - Oropharyngeal pain [Unknown]
  - Abdominal pain upper [Unknown]
  - Tracheal disorder [Unknown]
  - Red blood cell count decreased [Unknown]
